FAERS Safety Report 4465561-5 (Version None)
Quarter: 2004Q4

REPORT INFORMATION
  Report Type: 
  Country: None (occurrence: None)
  Receive Date: 20041004
  Receipt Date: 20040922
  Transmission Date: 20050328
  Serious: Yes (Life-Threatening, Hospitalization, Other)
  Sender: FDA-Public Use
  Company Number: FR-BRISTOL-MYERS SQUIBB COMPANY-12709481

PATIENT
  Age: 78 Year
  Sex: Female

DRUGS (13)
  1. REYATAZ [Suspect]
     Route: 048
     Dates: start: 20040428, end: 20040806
  2. NORVIR [Suspect]
     Route: 048
     Dates: start: 20040428, end: 20040806
  3. ISOPTINE LP [Suspect]
     Route: 048
     Dates: end: 20040806
  4. NEURONTIN [Concomitant]
  5. LEXOMIL [Concomitant]
  6. HYPERIUM [Concomitant]
  7. LEDERFOLINE [Concomitant]
  8. BACTRIM [Concomitant]
  9. AZADOSE [Concomitant]
  10. FENOFIBRATE [Concomitant]
  11. MOPRAL [Concomitant]
  12. ACTONEL [Concomitant]
  13. CACIT D3 [Concomitant]

REACTIONS (15)
  - ATRIOVENTRICULAR BLOCK [None]
  - BRADYCARDIA [None]
  - BUNDLE BRANCH BLOCK [None]
  - BUNDLE BRANCH BLOCK LEFT [None]
  - CARDIAC FAILURE [None]
  - CARDIOGENIC SHOCK [None]
  - COMA [None]
  - DRUG INEFFECTIVE [None]
  - DRUG INTERACTION [None]
  - ELECTROCARDIOGRAM QT PROLONGED [None]
  - HYPERTROPHIC CARDIOMYOPATHY [None]
  - HYPOTENSION [None]
  - OXYGEN SATURATION DECREASED [None]
  - SINOATRIAL BLOCK [None]
  - TREATMENT NONCOMPLIANCE [None]
